FAERS Safety Report 14381158 (Version 1)
Quarter: 2018Q1

REPORT INFORMATION
  Report Type: Spontaneous
  Country: IT (occurrence: IT)
  Receive Date: 20180112
  Receipt Date: 20180112
  Transmission Date: 20180509
  Serious: Yes (Other)
  Sender: FDA-Public Use
  Company Number: IT-SA-2018SA006759

PATIENT
  Age: 85 Year
  Sex: Female

DRUGS (3)
  1. SINVACOR [Concomitant]
     Active Substance: SIMVASTATIN
  2. KESTINE [Concomitant]
     Active Substance: EBASTINE
  3. PLAVIX [Suspect]
     Active Substance: CLOPIDOGREL BISULFATE
     Indication: ISCHAEMIC HEART DISEASE PROPHYLAXIS
     Route: 048
     Dates: start: 20170101, end: 20170923

REACTIONS (2)
  - Haematuria [Unknown]
  - Pain [Unknown]

NARRATIVE: CASE EVENT DATE: 20170923
